APPROVED DRUG PRODUCT: MORPHINE SULFATE
Active Ingredient: MORPHINE SULFATE
Strength: 30MG
Dosage Form/Route: TABLET, EXTENDED RELEASE;ORAL
Application: A076720 | Product #002
Applicant: NESHER PHARMACEUTICALS USA LLC
Approved: Dec 23, 2005 | RLD: No | RS: No | Type: DISCN